FAERS Safety Report 7951807-5 (Version None)
Quarter: 2011Q4

REPORT INFORMATION
  Report Type: 
  Country: None (occurrence: None)
  Receive Date: 20111130
  Receipt Date: 20111130
  Transmission Date: 20120403
  Serious: Yes (Death)
  Sender: FDA-Public Use
  Company Number: None

PATIENT
  Sex: Male
  Weight: 77.4 kg

DRUGS (3)
  1. TAXOL [Suspect]
     Dosage: 540 MG
  2. CARBOPLATIN [Suspect]
     Dosage: 1217 MG
     Dates: end: 20111031
  3. ERBITUX [Suspect]
     Dosage: 3709 MG
     Dates: end: 20111031

REACTIONS (2)
  - PNEUMONIA [None]
  - PNEUMONITIS [None]
